FAERS Safety Report 8184822 (Version 2)
Quarter: 2013Q3

REPORT INFORMATION
  Report Type: Spontaneous
  Country: US (occurrence: US)
  Receive Date: 20111018
  Receipt Date: 20130725
  Transmission Date: 20140515
  Serious: Yes (Other)
  Sender: FDA-Public Use
  Company Number: US-ASTELLAS-2011US006638

PATIENT
  Age: 49 Year
  Sex: Female

DRUGS (2)
  1. PROTOPIC [Suspect]
     Indication: SKIN DISORDER
     Dosage: UNK
     Route: 061
     Dates: start: 2004, end: 200412
  2. PROTOPIC [Suspect]
     Dosage: UNK
     Route: 061
     Dates: start: 2005, end: 2006

REACTIONS (1)
  - Intraductal proliferative breast lesion [Unknown]
